FAERS Safety Report 11937841 (Version 5)
Quarter: 2016Q1

REPORT INFORMATION
  Report Type: Report from Study
  Country: JP (occurrence: JP)
  Receive Date: 20160122
  Receipt Date: 20160328
  Transmission Date: 20160526
  Serious: Yes (Other)
  Sender: FDA-Public Use
  Company Number: JP-ROCHE-1697835

PATIENT
  Age: 65 Year
  Sex: Male
  Weight: 60 kg

DRUGS (16)
  1. PANITUMUMAB [Suspect]
     Active Substance: PANITUMUMAB
     Dosage: COMPLETED TREATMENT CYCLE NUMBER: 13
     Route: 041
     Dates: start: 20150123, end: 20150515
  2. ALOXI [Concomitant]
     Active Substance: PALONOSETRON HYDROCHLORIDE
     Indication: VOMITING
     Route: 041
     Dates: start: 20141027, end: 20150515
  3. IRINOTECAN HYDROCHLORIDE. [Suspect]
     Active Substance: IRINOTECAN HYDROCHLORIDE
     Indication: ADENOCARCINOMA OF COLON
     Dosage: ON DAY1
     Route: 041
     Dates: start: 20141027, end: 20150515
  4. ATROPINE SULFATE. [Concomitant]
     Active Substance: ATROPINE SULFATE
     Indication: PROPHYLAXIS
     Route: 041
     Dates: start: 20141112, end: 20150515
  5. SENNOSIDE [Concomitant]
     Active Substance: SENNOSIDES
     Indication: PROPHYLAXIS
     Route: 048
     Dates: start: 20130423, end: 20150305
  6. DEXAMETHASONE ACETATE [Concomitant]
     Active Substance: DEXAMETHASONE ACETATE
     Indication: VOMITING
     Route: 041
     Dates: start: 20141027, end: 20150515
  7. OXYCODONE [Concomitant]
     Active Substance: OXYCODONE
     Indication: CANCER PAIN
     Route: 048
     Dates: start: 20141031, end: 20150403
  8. BESOFTEN [Concomitant]
     Active Substance: SODIUM ALGINATE
     Indication: PALMAR-PLANTAR ERYTHRODYSAESTHESIA SYNDROME
  9. PANITUMUMAB [Suspect]
     Active Substance: PANITUMUMAB
     Indication: ADENOCARCINOMA OF COLON
     Route: 041
     Dates: start: 20141027, end: 20150109
  10. BIOFERMIN R [Concomitant]
     Active Substance: BACILLUS SUBTILIS\LACTOBACILLUS ACIDOPHILUS\STREPTOCOCCUS FAECAIS
     Indication: DIARRHOEA
     Route: 048
     Dates: start: 20140314, end: 20150303
  11. DECADRON [Concomitant]
     Active Substance: DEXAMETHASONE
     Indication: VOMITING
     Route: 048
     Dates: start: 20141028, end: 20141228
  12. BEVACIZUMAB [Suspect]
     Active Substance: BEVACIZUMAB
     Indication: ADENOCARCINOMA OF COLON
     Dosage: ON DAY1?TREATMENT LINE: 3 COMPLETED TREATMENT CYCLE NUMBER: 10
     Route: 041
     Dates: start: 20141027, end: 20150417
  13. BEVACIZUMAB [Suspect]
     Active Substance: BEVACIZUMAB
     Route: 041
     Dates: start: 20140314, end: 20141003
  14. HARNAL [Concomitant]
     Active Substance: TAMSULOSIN HYDROCHLORIDE
     Indication: BENIGN PROSTATIC HYPERPLASIA
     Route: 048
     Dates: start: 20130412
  15. BEVACIZUMAB [Suspect]
     Active Substance: BEVACIZUMAB
     Route: 041
     Dates: start: 20130130, end: 20140228
  16. EPINASTINE HYDROCHLORIDE. [Concomitant]
     Active Substance: EPINASTINE HYDROCHLORIDE
     Indication: RASH
     Route: 048
     Dates: start: 20150109, end: 20150528

REACTIONS (5)
  - Deep vein thrombosis [Unknown]
  - Hypophosphataemia [Unknown]
  - Protein urine [Recovering/Resolving]
  - Pulmonary embolism [Recovered/Resolved]
  - Dermatitis acneiform [Recovering/Resolving]

NARRATIVE: CASE EVENT DATE: 20141128
